FAERS Safety Report 9369260 (Version 2)
Quarter: 2013Q2

REPORT INFORMATION
  Report Type: Spontaneous
  Country: JP (occurrence: JP)
  Receive Date: 20130626
  Receipt Date: 20130626
  Transmission Date: 20140414
  Serious: Yes (Life-Threatening, Hospitalization, Other)
  Sender: FDA-Public Use
  Company Number: JP-009507513-0810USA04459

PATIENT
  Age: 76 Year
  Sex: Male
  Weight: 59 kg

DRUGS (9)
  1. NU-LOTAN TABLETS 25MG [Suspect]
     Indication: HYPERTENSION
     Dosage: 25 MG, QD
     Route: 048
     Dates: start: 20080918, end: 20080922
  2. NU-LOTAN TABLETS 25MG [Suspect]
     Dosage: 50 MG, QD
     Route: 048
     Dates: start: 20080923, end: 20080926
  3. LASIX (FUROSEMIDE) [Suspect]
     Indication: POLYURIA
     Dosage: 20 MG, QD
     Route: 048
     Dates: start: 20080923, end: 20080929
  4. LIPITOR [Concomitant]
     Indication: HYPERLIPIDAEMIA
     Dosage: 1 DF, QD
     Route: 048
     Dates: start: 20080918, end: 20080926
  5. ZYLORIC [Concomitant]
     Indication: HYPERURICAEMIA
     Dosage: 0.5 DF, QD
     Route: 048
     Dates: start: 20080923, end: 20081005
  6. ZYLORIC [Concomitant]
     Dosage: 1 DF, QD
     Route: 048
     Dates: end: 20080922
  7. NORVASC [Concomitant]
     Indication: HYPERTENSION
     Dosage: 5 MG, QD
     Route: 048
     Dates: end: 20081005
  8. KREMEZIN [Concomitant]
     Indication: AZOTAEMIA
     Dosage: 2 G, TID
     Route: 048
     Dates: start: 20080918, end: 20081002
  9. FLUITRAN [Concomitant]
     Indication: POLYURIA
     Dosage: DAILY DOSAGE UNKNOWN
     Route: 048
     Dates: end: 20080922

REACTIONS (1)
  - Toxic epidermal necrolysis [Recovered/Resolved]
